FAERS Safety Report 18735187 (Version 4)
Quarter: 2021Q2

REPORT INFORMATION
  Report Type: Report from Study
  Country: US (occurrence: US)
  Receive Date: 20210113
  Receipt Date: 20210507
  Transmission Date: 20210717
  Serious: No
  Sender: FDA-Public Use
  Company Number: US-KYOWAKIRIN-2021BKK000176

PATIENT

DRUGS (2)
  1. CRYSVITA [Suspect]
     Active Substance: BUROSUMAB-TWZA
     Dosage: 60 MG, EVERY 4 WEEKS
     Route: 058
     Dates: start: 20200403
  2. CRYSVITA [Suspect]
     Active Substance: BUROSUMAB-TWZA
     Indication: HEREDITARY HYPOPHOSPHATAEMIC RICKETS
     Dosage: 60 MG, EVERY 4 WEEKS
     Route: 058
     Dates: start: 20200407

REACTIONS (5)
  - Arthralgia [Unknown]
  - Toothache [Unknown]
  - Tooth abscess [Unknown]
  - Condition aggravated [Unknown]
  - Oral pain [Unknown]
